FAERS Safety Report 9165894 (Version 2)
Quarter: 2013Q2

REPORT INFORMATION
  Report Type: Spontaneous
  Country: FR (occurrence: FR)
  Receive Date: 20130315
  Receipt Date: 20130627
  Transmission Date: 20140414
  Serious: Yes (Life-Threatening)
  Sender: FDA-Public Use
  Company Number: FR-ASTRAZENECA-2013SE16317

PATIENT
  Age: 19651 Day
  Sex: Male

DRUGS (10)
  1. DIPRIVAN [Suspect]
     Route: 042
     Dates: start: 20130225, end: 20130225
  2. KETAMINE [Suspect]
     Route: 042
     Dates: start: 20130225, end: 20130225
  3. HYPNOVEL [Suspect]
     Route: 042
     Dates: start: 20130225, end: 20130225
  4. SUFENTA [Suspect]
     Route: 042
     Dates: start: 20130225, end: 20130225
  5. ATARAX [Concomitant]
     Dosage: ONCE/SINGLE ADMINISTRATION
     Route: 048
     Dates: start: 20130225, end: 20130225
  6. XANAX [Concomitant]
     Dosage: ONCE/SINGLE ADMINISTRATION
     Route: 048
     Dates: start: 20130225, end: 20130225
  7. AVLOCARDYL [Concomitant]
  8. VASTEN [Concomitant]
  9. BUSPAR [Concomitant]
  10. ANAFRANIL [Concomitant]

REACTIONS (2)
  - Cardiogenic shock [Recovered/Resolved]
  - Anaphylactic shock [Recovered/Resolved]
